FAERS Safety Report 7493046-0 (Version None)
Quarter: 2011Q2

REPORT INFORMATION
  Report Type: 
  Country: None (occurrence: None)
  Receive Date: 20110520
  Receipt Date: 20110516
  Transmission Date: 20111010
  Serious: No
  Sender: FDA-Public Use
  Company Number: US-PFIZER INC-2011084438

PATIENT
  Age: 76 Year
  Sex: Male

DRUGS (2)
  1. HYTRIN [Suspect]
     Indication: NOCTURIA
     Dosage: 10 MG, NIGHTLY
     Route: 048
  2. VIAGRA [Suspect]
     Indication: ERECTILE DYSFUNCTION
     Dosage: 100 MG, 1X/DAY
     Route: 048

REACTIONS (2)
  - BACK PAIN [None]
  - EJACULATION DELAYED [None]
